FAERS Safety Report 21591655 (Version 1)
Quarter: 2022Q4

REPORT INFORMATION
  Report Type: Spontaneous
  Country: US (occurrence: US)
  Receive Date: 20221114
  Receipt Date: 20221114
  Transmission Date: 20230113
  Serious: Yes (Other)
  Sender: FDA-Public Use
  Company Number: US-BoehringerIngelheim-2022-BI-201517

PATIENT
  Sex: Female

DRUGS (3)
  1. STRIVERDI RESPIMAT [Suspect]
     Active Substance: OLODATEROL HYDROCHLORIDE
     Indication: Chronic obstructive pulmonary disease
     Dosage: 2 PUFFS?FORM OF ADMIN: INHALATION SPRAY
     Dates: start: 2012, end: 202210
  2. STIOLTO RESPIMAT [Suspect]
     Active Substance: OLODATEROL HYDROCHLORIDE\TIOTROPIUM BROMIDE MONOHYDRATE
     Indication: Chronic obstructive pulmonary disease
     Dosage: 2 PUFFS?FORM OF ADMIN:INHALATION SPRAY
     Dates: start: 202210
  3. SPIRIVA RESPIMAT [Suspect]
     Active Substance: TIOTROPIUM BROMIDE
     Indication: Chronic obstructive pulmonary disease
     Dosage: 2 PUFFS?FORM OF ADMIN:INHALATION SPRAY
     Dates: start: 2012, end: 202210

REACTIONS (2)
  - Dyspnoea [Not Recovered/Not Resolved]
  - Device use error [Unknown]
